FAERS Safety Report 20798732 (Version 4)
Quarter: 2022Q3

REPORT INFORMATION
  Report Type: Spontaneous
  Country: US (occurrence: US)
  Receive Date: 20220507
  Receipt Date: 20220902
  Transmission Date: 20221027
  Serious: No
  Sender: FDA-Public Use
  Company Number: US-BRISTOL-MYERS SQUIBB COMPANY-2022-032050

PATIENT
  Age: 46 Year
  Sex: Female

DRUGS (1)
  1. REVLIMID [Suspect]
     Active Substance: LENALIDOMIDE
     Indication: Product used for unknown indication
     Route: 048
     Dates: start: 202202

REACTIONS (5)
  - Oropharyngeal pain [Unknown]
  - Fatigue [Unknown]
  - Taste disorder [Unknown]
  - Product dose omission issue [Unknown]
  - Dry skin [Unknown]

NARRATIVE: CASE EVENT DATE: 20220201
